FAERS Safety Report 15233653 (Version 1)
Quarter: 2018Q3

REPORT INFORMATION
  Report Type: Spontaneous
  Country: JP (occurrence: JP)
  Receive Date: 20180802
  Receipt Date: 20180802
  Transmission Date: 20181010
  Serious: Yes (Other)
  Sender: FDA-Public Use
  Company Number: JP-PFIZER INC-2018299886

PATIENT
  Age: 8 Year
  Sex: Female

DRUGS (1)
  1. METHOTREXATE. [Suspect]
     Active Substance: METHOTREXATE
     Dosage: 12 G/M2, UNK

REACTIONS (3)
  - Blood creatinine increased [Unknown]
  - Liver function test increased [Unknown]
  - Drug level increased [Unknown]
